FAERS Safety Report 9967675 (Version 1)
Quarter: 2014Q1

REPORT INFORMATION
  Report Type: Spontaneous
  Country: PT (occurrence: PT)
  Receive Date: 20140305
  Receipt Date: 20140305
  Transmission Date: 20141002
  Serious: Yes (Disabling)
  Sender: FDA-Public Use
  Company Number: PT-MYLANLABS-2014S1003846

PATIENT
  Age: 83 Year
  Sex: Male
  Weight: 72 kg

DRUGS (8)
  1. ALPRAZOLAM MYLAN [Suspect]
     Indication: ANXIETY
     Route: 048
     Dates: start: 20140131, end: 20140203
  2. DORMONOCT [Interacting]
     Indication: ANXIETY
     Route: 048
  3. ENALAPRIL RATIOPHARM [Concomitant]
     Indication: HYPERTENSION
     Route: 048
  4. LOSARTAN MYLAN [Concomitant]
     Indication: HYPERTENSION
     Route: 048
  5. TROMALYT [Concomitant]
     Indication: PROPHYLAXIS
     Route: 048
  6. ADALAT [Concomitant]
     Indication: HYPERTENSION
     Route: 048
  7. ADALAT [Concomitant]
     Indication: HYPERTENSION
     Route: 048
  8. MODURETIC [Concomitant]
     Indication: HYPERTENSION
     Route: 048

REACTIONS (5)
  - Vision blurred [Recovered/Resolved]
  - Muscular weakness [Recovered/Resolved]
  - Amnesia [Recovered/Resolved]
  - Tremor [Recovered/Resolved]
  - Drug interaction [Recovered/Resolved]
